FAERS Safety Report 12092337 (Version 1)
Quarter: 2016Q1

REPORT INFORMATION
  Report Type: Spontaneous
  Country: US (occurrence: None)
  Receive Date: 20160217
  Receipt Date: 20160217
  Transmission Date: 20160526
  Serious: Yes (Disabling)
  Sender: FDA-Public Use
  Company Number: None

PATIENT
  Age: 22 Year
  Sex: Male

DRUGS (3)
  1. OLD SPICE SHOWER + BATH LIQUID [Suspect]
     Active Substance: COSMETICS
     Route: 061
     Dates: end: 201601
  2. OLD SPICE PLAYMAKER HIGH ENDURANCE [Suspect]
     Active Substance: ALUMINUM ZIRCONIUM TRICHLOROHYDREX GLY
     Dosage: 1 APPLICATION 1 /DAY TOPICAL
     Route: 061
     Dates: end: 201601
  3. OLD SPICE ANTIPERSPIRANT DEODORANT + BODY SPRAY [Suspect]
     Active Substance: ALUMINUM ZIRCONIUM TRICHLOROHYDREX GLY
     Dosage: 1 APPLICATION, 1/DAY, TOPICAL
     Route: 061
     Dates: end: 201601

REACTIONS (15)
  - Application site inflammation [None]
  - Application site dermatitis [None]
  - Movement disorder [None]
  - Impaired work ability [None]
  - Application site rash [None]
  - Hyperhidrosis [None]
  - Application site erythema [None]
  - Application site urticaria [None]
  - Application site discolouration [None]
  - Application site haemorrhage [None]
  - Application site scab [None]
  - Impaired driving ability [None]
  - Drug ineffective [None]
  - Application site pain [None]
  - Application site hypersensitivity [None]

NARRATIVE: CASE EVENT DATE: 201511
